FAERS Safety Report 4284395-8 (Version None)
Quarter: 2004Q1

REPORT INFORMATION
  Report Type: 
  Country: None (occurrence: None)
  Receive Date: 20040203
  Receipt Date: 20040122
  Transmission Date: 20041129
  Serious: Yes (Death, Life-Threatening, Hospitalization)
  Sender: FDA-Public Use
  Company Number: PHEH2004US01170

PATIENT
  Age: 41 Year
  Sex: Female
  Weight: 65 kg

DRUGS (6)
  1. ZELNORM [Suspect]
     Indication: IRRITABLE BOWEL SYNDROME
     Dosage: 6 MG, BID
     Route: 048
  2. LITHOBID [Concomitant]
  3. SEROQUEL [Concomitant]
  4. LEVOXYL [Concomitant]
  5. AMBIEN [Concomitant]
  6. ALBUTEROL [Concomitant]

REACTIONS (6)
  - BRAIN DEATH [None]
  - CARDIAC ARREST [None]
  - CIRCULATORY COLLAPSE [None]
  - COLON GANGRENE [None]
  - LARGE INTESTINE PERFORATION [None]
  - PURULENCE [None]
